FAERS Safety Report 21348699 (Version 1)
Quarter: 2022Q3

REPORT INFORMATION
  Report Type: Spontaneous
  Country: CA (occurrence: None)
  Receive Date: 20220917
  Receipt Date: 20220917
  Transmission Date: 20221027
  Serious: No
  Sender: FDA-Public Use
  Company Number: None

PATIENT
  Age: 30 Year
  Sex: Female

DRUGS (1)
  1. ATIVAN [Suspect]
     Active Substance: LORAZEPAM
     Indication: Anxiety

REACTIONS (6)
  - Anger [None]
  - Anger [None]
  - Aggression [None]
  - Agoraphobia [None]
  - Hormone level abnormal [None]
  - Nervous system disorder [None]

NARRATIVE: CASE EVENT DATE: 20210912
